FAERS Safety Report 20480068 (Version 1)
Quarter: 2022Q1

REPORT INFORMATION
  Report Type: Spontaneous
  Country: CN (occurrence: None)
  Receive Date: 20220216
  Receipt Date: 20220216
  Transmission Date: 20220423
  Serious: Yes (Hospitalization)
  Sender: FDA-Public Use
  Company Number: 2022A068932

PATIENT
  Age: 64 Year
  Sex: Female

DRUGS (2)
  1. GEFITINIB [Suspect]
     Active Substance: GEFITINIB
     Route: 048
     Dates: end: 202201
  2. XALKORI [Concomitant]
     Active Substance: CRIZOTINIB

REACTIONS (5)
  - Blood alkaline phosphatase increased [Unknown]
  - Glutamate dehydrogenase increased [Unknown]
  - Transaminases increased [Unknown]
  - Gamma-glutamyltransferase increased [Unknown]
  - Drug resistance [Unknown]
